FAERS Safety Report 7355518-9 (Version None)
Quarter: 2011Q1

REPORT INFORMATION
  Report Type: 
  Country: None (occurrence: None)
  Receive Date: 20110316
  Receipt Date: 20110311
  Transmission Date: 20110831
  Serious: Yes (Hospitalization, Congenital Anomaly)
  Sender: FDA-Public Use
  Company Number: A0918084A

PATIENT
  Sex: Male

DRUGS (2)
  1. PAXIL [Suspect]
     Dosage: 20MG PER DAY
     Route: 064
     Dates: end: 19990104
  2. LEVOXYL [Concomitant]
     Route: 064

REACTIONS (9)
  - ARNOLD-CHIARI MALFORMATION [None]
  - HYDROCEPHALUS [None]
  - ARACHNOID CYST [None]
  - SPINA BIFIDA [None]
  - TALIPES [None]
  - CONVULSION [None]
  - DRUG EXPOSURE DURING PREGNANCY [None]
  - RESPIRATORY DISTRESS [None]
  - MENINGOMYELOCELE [None]
